FAERS Safety Report 7994831-9 (Version None)
Quarter: 2011Q4

REPORT INFORMATION
  Report Type: 
  Country: None (occurrence: None)
  Receive Date: 20111220
  Receipt Date: 20111215
  Transmission Date: 20120403
  Serious: Yes (Hospitalization)
  Sender: FDA-Public Use
  Company Number: US-GILEAD-2011-0047831

PATIENT
  Sex: Female

DRUGS (5)
  1. ADCIRCA [Concomitant]
     Indication: PULMONARY ARTERIAL HYPERTENSION
  2. LETAIRIS [Suspect]
     Indication: PULMONARY HYPERTENSION
     Dosage: 10 MG, UNK
     Route: 048
     Dates: start: 20111028
  3. FERROUS SULFATE TAB [Concomitant]
     Indication: ANAEMIA
  4. TYVASO [Concomitant]
  5. NAPROXEN [Concomitant]
     Indication: HEADACHE

REACTIONS (1)
  - STATUS MIGRAINOSUS [None]
